FAERS Safety Report 9421767 (Version 2)
Quarter: 2013Q3

REPORT INFORMATION
  Report Type: Spontaneous
  Country: JP (occurrence: JP)
  Receive Date: 20130726
  Receipt Date: 20130808
  Transmission Date: 20140515
  Serious: Yes (Death)
  Sender: FDA-Public Use
  Company Number: JP-009507513-1307JPN014012

PATIENT
  Age: 70 Year
  Sex: Male
  Weight: 49 kg

DRUGS (14)
  1. PEGINTRON [Suspect]
     Indication: CHRONIC HEPATITIS C
     Dosage: 80 MICROGRAM, QW
     Route: 058
     Dates: start: 20130611, end: 20130625
  2. PEGINTRON [Suspect]
     Dosage: DAILY DOSE UNKNOWN, QW
     Route: 058
     Dates: start: 20130716, end: 20130716
  3. REBETOL [Suspect]
     Indication: CHRONIC HEPATITIS C
     Dosage: 600 MG, QD;DIVIDED DOSE FREQUENCY UNKNOWN
     Route: 048
     Dates: start: 20130611, end: 20130624
  4. REBETOL [Suspect]
     Dosage: 400 MG, QD; DIVIDED DOSE FREQUENCY UNKNOWN
     Route: 048
     Dates: start: 20130625, end: 20130701
  5. REBETOL [Suspect]
     Dosage: 200 MG, QD;DIVIDED DOSE FREQUENCY UNKNOWN
     Route: 048
     Dates: start: 20130716, end: 20130720
  6. ZANTAC [Concomitant]
     Dosage: 150 MG, QD;DIVIDED DOSE FREQUENCY UNKNOWN
  7. ITOROL [Concomitant]
     Dosage: 40 MG, QD;DIVIDED DOSE FREQUENCY UNKNOWN
  8. MEXITIL [Concomitant]
     Dosage: 100 MG, QD;DIVIDED DOSE FREQUENCY UNKNOWN
  9. AMARYL [Concomitant]
     Dosage: 2 MG, QD;DIVIDED DOSE FREQUENCY UNKNOWN
  10. ARTIST [Concomitant]
     Dosage: 10 MG, QD;DIVIDED DOSE FREQUENCY UNKNOWN
  11. BUFFERIN [Concomitant]
     Dosage: 81 MG, QD;DIVIDED DOSE FREQUENCY UNKNOWN
  12. LANIRAPID [Concomitant]
     Dosage: 0.1 MG, QD;DIVIDED DOSE FREQUENCY UNKNOWN
  13. DIART [Concomitant]
     Dosage: 30 MG, QD;DIVIDED DOSE FREQUENCY UNKNOWN
  14. VOGLIBOSE [Concomitant]
     Dosage: 0.9 MG, QD;DIVIDED DOSE FREQUENCY UNKNOWN

REACTIONS (3)
  - Altered state of consciousness [Fatal]
  - Respiratory arrest [Fatal]
  - Haemoglobin decreased [Unknown]
